FAERS Safety Report 20684023 (Version 1)
Quarter: 2022Q2

REPORT INFORMATION
  Report Type: Spontaneous
  Country: US (occurrence: None)
  Receive Date: 20220405
  Receipt Date: 20220405
  Transmission Date: 20220721
  Serious: Yes (Death)
  Sender: FDA-Public Use
  Company Number: None

PATIENT
  Sex: Female
  Weight: 75.3 kg

DRUGS (7)
  1. MEKINIST [Suspect]
     Active Substance: TRAMETINIB DIMETHYL SULFOXIDE
     Indication: Ovarian cancer
     Dosage: FREQUENCY : DAILY;?
     Route: 048
  2. CELEBREX [Concomitant]
  3. COZAAR [Concomitant]
  4. LIPITOR [Concomitant]
  5. DETROLA LA [Concomitant]
  6. CYMBALTA [Concomitant]
  7. LYRICA [Concomitant]

REACTIONS (1)
  - Death [None]
